FAERS Safety Report 24661241 (Version 1)
Quarter: 2024Q4

REPORT INFORMATION
  Report Type: Spontaneous
  Country: US (occurrence: US)
  Receive Date: 20241125
  Receipt Date: 20241125
  Transmission Date: 20250114
  Serious: No
  Sender: AVADEL CNS PHARMACEUTICALS, LLC
  Company Number: US-AVADEL CNS PHARMACEUTICALS, LLC-2024AVA01571

PATIENT
  Sex: Female
  Weight: 91.156 kg

DRUGS (7)
  1. LUMRYZ [Suspect]
     Active Substance: SODIUM OXYBATE
     Indication: Narcolepsy
     Dosage: UNK
     Route: 048
     Dates: start: 202405, end: 202406
  2. LUMRYZ [Suspect]
     Active Substance: SODIUM OXYBATE
     Indication: Narcolepsy
     Dosage: 7.5 G, ONCE NIGHTLY
     Route: 048
     Dates: start: 202406, end: 2024
  3. LUMRYZ [Suspect]
     Active Substance: SODIUM OXYBATE
     Indication: Narcolepsy
     Dosage: 9 G
     Route: 048
     Dates: start: 2024
  4. LEVOTHYROXINE [Concomitant]
     Active Substance: LEVOTHYROXINE
     Dosage: 100 ^MG^, DAILY
  5. ZOLOFT [Concomitant]
     Active Substance: SERTRALINE HYDROCHLORIDE
     Dosage: 150 MG, AS NEEDED DAILY (ONLY USE IT IF HAVE A DEPRESSION FLARE)
  6. CETIRIZINE [Concomitant]
     Active Substance: CETIRIZINE HYDROCHLORIDE
     Dosage: 10 MG, DAILY AS NEEDED
  7. IBUPROFEN [Concomitant]
     Active Substance: IBUPROFEN
     Dosage: 800 MG, AS NEEDED (PRN)

REACTIONS (10)
  - Therapeutic product effect prolonged [Recovered/Resolved]
  - Middle insomnia [Not Recovered/Not Resolved]
  - Insomnia [Recovered/Resolved]
  - Fatigue [Not Recovered/Not Resolved]
  - Drug withdrawal syndrome [Recovered/Resolved]
  - Somnolence [Recovered/Resolved]
  - Vision blurred [Recovered/Resolved]
  - Weight decreased [Not Recovered/Not Resolved]
  - Headache [Recovered/Resolved]
  - Product dose omission issue [Recovered/Resolved]

NARRATIVE: CASE EVENT DATE: 20240101
